FAERS Safety Report 6288595-7 (Version None)
Quarter: 2009Q3

REPORT INFORMATION
  Report Type: 
  Country: None (occurrence: None)
  Receive Date: 20090729
  Receipt Date: 20090720
  Transmission Date: 20100115
  Serious: Yes (Other)
  Sender: FDA-Public Use
  Company Number: GB-TEVA-203091ISR

PATIENT
  Age: 50 Year
  Sex: Male

DRUGS (2)
  1. WARFARIN SODIUM [Suspect]
     Dosage: STANDARD MODERATE INDUCTION DOSAGES
  2. WARFARIN SODIUM [Suspect]

REACTIONS (1)
  - COAGULOPATHY [None]
